FAERS Safety Report 21663658 (Version 1)
Quarter: 2022Q4

REPORT INFORMATION
  Report Type: Spontaneous
  Country: GB (occurrence: GB)
  Receive Date: 20221130
  Receipt Date: 20221130
  Transmission Date: 20230112
  Serious: Yes (Death, Other)
  Sender: FDA-Public Use
  Company Number: GB-BAYER-2022P024160

PATIENT
  Age: 52 Year
  Sex: Female

DRUGS (4)
  1. LAROTRECTINIB [Suspect]
     Active Substance: LAROTRECTINIB
     Indication: Papillary thyroid cancer
     Dosage: UNK
     Dates: start: 202101, end: 202205
  2. LAROTRECTINIB [Suspect]
     Active Substance: LAROTRECTINIB
     Indication: Metastases to lung
  3. LAROTRECTINIB [Suspect]
     Active Substance: LAROTRECTINIB
     Indication: Metastases to pleura
  4. LAROTRECTINIB [Suspect]
     Active Substance: LAROTRECTINIB
     Indication: Metastases to neck

REACTIONS (4)
  - Death [Fatal]
  - Papillary thyroid cancer [None]
  - Papillary thyroid cancer [None]
  - General physical health deterioration [None]

NARRATIVE: CASE EVENT DATE: 20210101
